FAERS Safety Report 5601241-8 (Version None)
Quarter: 2008Q1

REPORT INFORMATION
  Report Type: 
  Country: None (occurrence: None)
  Receive Date: 20080118
  Receipt Date: 20080104
  Transmission Date: 20080703
  Serious: Yes (Life-Threatening, Hospitalization)
  Sender: FDA-Public Use
  Company Number: 106923 (2)

PATIENT
  Age: 66 Year
  Sex: Male

DRUGS (1)
  1. DAIVOBET [Suspect]
     Indication: PSORIASIS
     Dosage: 1 DF (1 DF, 1 IN 1 D) TOPICAL
     Route: 061
     Dates: start: 20071110, end: 20071114

REACTIONS (3)
  - CONDITION AGGRAVATED [None]
  - PSORIASIS [None]
  - SKIN EXFOLIATION [None]
